FAERS Safety Report 22123587 (Version 3)
Quarter: 2023Q1

REPORT INFORMATION
  Report Type: Spontaneous
  Country: DE (occurrence: None)
  Receive Date: 20230322
  Receipt Date: 20230330
  Transmission Date: 20230418
  Serious: Yes (Other)
  Sender: FDA-Public Use
  Company Number: DE-ROCHE-3314053

PATIENT
  Sex: Female

DRUGS (14)
  1. MABTHERA [Suspect]
     Active Substance: RITUXIMAB
     Indication: Diffuse large B-cell lymphoma
     Dosage: THE FIRST ADMINISTRATION WAS WITH RITUXIMAB BIOSIMILAR, AND FOR THE SUBSEQUENT ADMINISTRATIONS MABTH
     Route: 058
     Dates: end: 20220501
  2. MABTHERA [Suspect]
     Active Substance: RITUXIMAB
     Dosage: THE FIRST ADMINISTRATION WAS WITH RITUXIMAB BIOSIMILAR, AND FOR THE SUBSEQUENT ADMINISTRATIONS MABTH
     Route: 058
     Dates: end: 20220601
  3. RITUXIMAB [Suspect]
     Active Substance: RITUXIMAB
     Indication: Diffuse large B-cell lymphoma
     Dosage: THE FIRST ADMINISTRATION WAS WITH RITUXIMAB BIOSIMILAR, AND FOR THE SUBSEQUENT ADMINISTRATIONS MABTH
     Route: 065
     Dates: start: 20220201
  4. RITUXIMAB [Suspect]
     Active Substance: RITUXIMAB
     Dosage: THE FIRST ADMINISTRATION WAS WITH RITUXIMAB BIOSIMILAR, AND FOR THE SUBSEQUENT ADMINISTRATIONS MABTH
     Route: 065
     Dates: start: 20220501
  5. DOXORUBICIN HYDROCHLORIDE [Suspect]
     Active Substance: DOXORUBICIN HYDROCHLORIDE
     Indication: Diffuse large B-cell lymphoma
     Route: 065
     Dates: start: 20220201, end: 20220501
  6. VINCRISTINE [Suspect]
     Active Substance: VINCRISTINE
     Indication: Diffuse large B-cell lymphoma
     Route: 065
     Dates: start: 20220201, end: 20220501
  7. PREDNISONE [Suspect]
     Active Substance: PREDNISONE
     Indication: Diffuse large B-cell lymphoma
     Route: 065
     Dates: start: 20220201, end: 20220501
  8. CYCLOPHOSPHAMIDE [Suspect]
     Active Substance: CYCLOPHOSPHAMIDE
     Indication: Diffuse large B-cell lymphoma
     Route: 065
     Dates: start: 20220201, end: 20220501
  9. POLIVY [Suspect]
     Active Substance: POLATUZUMAB VEDOTIN-PIIQ
     Indication: Diffuse large B-cell lymphoma
     Route: 065
     Dates: start: 20220501, end: 20220601
  10. BENDAMUSTINE [Suspect]
     Active Substance: BENDAMUSTINE
     Indication: Diffuse large B-cell lymphoma
     Route: 065
     Dates: start: 20220501, end: 20220601
  11. TAFASITAMAB-CXIX [Suspect]
     Active Substance: TAFASITAMAB-CXIX
     Indication: Diffuse large B-cell lymphoma
     Dosage: IN FOURTH LINE THE PATIENT WAS TREATED WITH TAFASITAMAB AND LENALIDOMIDE, RESPONSE: NO RESPONSE/STAB
     Route: 065
     Dates: start: 20230101, end: 20230201
  12. LENALIDOMIDE [Suspect]
     Active Substance: LENALIDOMIDE
     Indication: Diffuse large B-cell lymphoma
     Dosage: 1N FOURTH LINE THE PATIENT WAS TREATED WITH TAFASIATAMAB AND LENALIDOMIDE RESPONSE: NO RESPONSE/STAB
     Route: 065
     Dates: start: 20230101, end: 20230201
  13. GEMCITABINE [Suspect]
     Active Substance: GEMCITABINE
     Indication: Diffuse large B-cell lymphoma
     Dosage: IN FIFTH LINE THE PATIENT WAS TREATED WITH GEMOX (GEMCITABINE OXALIPLATIN), RESPONSE: NO RESPONSE/ST
     Route: 065
     Dates: start: 20230201, end: 20230308
  14. OXALIPLATIN [Suspect]
     Active Substance: OXALIPLATIN
     Indication: Diffuse large B-cell lymphoma
     Dosage: IN FIFTH LINE THE PATIENT WAS TREATED WITH GEMOX (GEMCITABINE OXALIPLATIN), RESPONSE: NO RESPONSE/ST
     Route: 065
     Dates: start: 20230201, end: 20230308

REACTIONS (1)
  - Lymphoma [Unknown]
